FAERS Safety Report 16134432 (Version 1)
Quarter: 2019Q1

REPORT INFORMATION
  Report Type: Spontaneous
  Country: US (occurrence: US)
  Receive Date: 20190331
  Receipt Date: 20190331
  Transmission Date: 20190418
  Serious: No
  Sender: FDA-Public Use
  Company Number: US-JNJFOC-20190316478

PATIENT
  Age: 23 Year
  Sex: Female
  Weight: 87.54 kg

DRUGS (8)
  1. AMOXICILLIN. [Concomitant]
     Active Substance: AMOXICILLIN
     Route: 065
  2. CEFALEXIN [Concomitant]
     Active Substance: CEPHALEXIN
     Route: 065
  3. REMICADE [Suspect]
     Active Substance: INFLIXIMAB
     Indication: CROHN^S DISEASE
     Route: 042
     Dates: start: 20190223
  4. OXYCODONE [Concomitant]
     Active Substance: OXYCODONE
     Route: 065
  5. NYSTATIN. [Concomitant]
     Active Substance: NYSTATIN
     Route: 065
  6. NITROFURANTOIN. [Concomitant]
     Active Substance: NITROFURANTOIN
     Route: 065
  7. IBUPROFEN. [Concomitant]
     Active Substance: IBUPROFEN
     Route: 065
  8. HYDROCORTISONE. [Concomitant]
     Active Substance: HYDROCORTISONE

REACTIONS (2)
  - Product dose omission [Unknown]
  - Poor venous access [Unknown]

NARRATIVE: CASE EVENT DATE: 20190309
